FAERS Safety Report 14093539 (Version 1)
Quarter: 2017Q4

REPORT INFORMATION
  Report Type: Spontaneous
  Country: US (occurrence: US)
  Receive Date: 20171016
  Receipt Date: 20171016
  Transmission Date: 20180321
  Serious: No
  Sender: FDA-Public Use
  Company Number: US-ELI_LILLY_AND_COMPANY-US201710004273

PATIENT
  Age: 78 Year
  Sex: Female

DRUGS (3)
  1. HUMALOG KWIKPEN [Suspect]
     Active Substance: INSULIN LISPRO
     Dosage: 2 U, UNK
     Route: 065
  2. BENEFIBER                          /00677201/ [Suspect]
     Active Substance: ICODEXTRIN
     Indication: PRODUCT USED FOR UNKNOWN INDICATION
     Dosage: UNK UNK, UNKNOWN
     Route: 065
  3. HUMALOG KWIKPEN [Suspect]
     Active Substance: INSULIN LISPRO
     Indication: DIABETES MELLITUS
     Dosage: 2 U, UNK
     Route: 065
     Dates: start: 2014

REACTIONS (9)
  - Malaise [Unknown]
  - Drug dose omission [Unknown]
  - Heart rate irregular [Unknown]
  - Incorrect drug administration duration [Unknown]
  - Blood glucose increased [Not Recovered/Not Resolved]
  - Cough [Unknown]
  - Abdominal pain upper [Unknown]
  - Diverticulum [Unknown]
  - Vomiting [Unknown]

NARRATIVE: CASE EVENT DATE: 2016
